FAERS Safety Report 5637549-X (Version None)
Quarter: 2008Q1

REPORT INFORMATION
  Report Type: 
  Country: None (occurrence: None)
  Receive Date: 20080225
  Receipt Date: 20080215
  Transmission Date: 20080703
  Serious: Yes (Disabling)
  Sender: FDA-Public Use
  Company Number: FR-PFIZER INC-2008015125

PATIENT
  Sex: Male

DRUGS (1)
  1. TAHOR [Suspect]
     Dosage: DAILY DOSE:80MG

REACTIONS (1)
  - PAIN [None]
